FAERS Safety Report 8043006-6 (Version None)
Quarter: 2012Q1

REPORT INFORMATION
  Report Type: 
  Country: None (occurrence: None)
  Receive Date: 20120112
  Receipt Date: 20120110
  Transmission Date: 20120608
  Serious: Yes (Other)
  Sender: FDA-Public Use
  Company Number: PHHY2012NL002166

PATIENT
  Sex: Female

DRUGS (6)
  1. ZOMETA [Suspect]
     Dosage: 4 MG,/100ML 1X PER 28 DAYS
     Dates: start: 20120110
  2. PANTOPRAZOLE [Concomitant]
     Dosage: 40 MG, 1X1
  3. ZOMETA [Suspect]
     Dosage: 4 MG,/100ML 1X PER 28 DAYS
     Dates: start: 20100107
  4. ZOMETA [Suspect]
     Indication: BREAST CANCER METASTATIC
     Dosage: 4 MG,/100ML 1X PER 28 DAYS
  5. ZOMETA [Suspect]
     Dosage: 4 MG,/100ML 1X PER 28 DAYS
     Dates: start: 20111214
  6. XELODA [Concomitant]
     Dosage: 500 MG, 2X4

REACTIONS (1)
  - PULMONARY EMBOLISM [None]
